FAERS Safety Report 7684907-8 (Version None)
Quarter: 2011Q3

REPORT INFORMATION
  Report Type: 
  Country: None (occurrence: None)
  Receive Date: 20110810
  Receipt Date: 20110727
  Transmission Date: 20111222
  Serious: Yes (Death, Hospitalization)
  Sender: FDA-Public Use
  Company Number: 2011-314

PATIENT
  Age: 41 Year
  Sex: Female

DRUGS (9)
  1. GLYBURIDE [Concomitant]
  2. TAGAMET [Concomitant]
  3. FAZACLO ODT [Suspect]
     Dosage: 450 MG, QD, ORAL
     Route: 048
     Dates: start: 20061107, end: 20110727
  4. DEPAKOTE [Concomitant]
  5. PAMELOR [Concomitant]
  6. ZOCOR [Concomitant]
  7. LISINOPRIL [Concomitant]
  8. DOCUSATE (DOCUSATE) [Concomitant]
  9. METFORMIN HCL [Concomitant]

REACTIONS (2)
  - CHOKING [None]
  - PNEUMONIA [None]
